FAERS Safety Report 24196619 (Version 2)
Quarter: 2024Q3

REPORT INFORMATION
  Report Type: Spontaneous
  Country: CA (occurrence: CA)
  Receive Date: 20240810
  Receipt Date: 20240815
  Transmission Date: 20241016
  Serious: Yes (Hospitalization)
  Sender: CELLTRION
  Company Number: CA-PFIZER INC-202400180246

PATIENT

DRUGS (5)
  1. INFLECTRA [Suspect]
     Active Substance: INFLIXIMAB-DYYB
     Indication: Colitis ulcerative
     Dosage: 500 MG, Q 0, 2,6, THEN EVERY 8 WEEKS (WEEK 0 AT HOSPITAL 11.03 MG/KG)
     Route: 042
     Dates: start: 20240524, end: 20240524
  2. INFLECTRA [Suspect]
     Active Substance: INFLIXIMAB-DYYB
     Dosage: UNK, 0, 2,6, THEN EVERY 8 WEEKS (HALF DOSE)
     Route: 042
     Dates: start: 20240610, end: 20240610
  3. INFLECTRA [Suspect]
     Active Substance: INFLIXIMAB-DYYB
     Dosage: 500 MG, Q 0, 2,6, THEN EVERY 8 WEEKSWEEK 0 AT HOSPITAL
     Route: 042
     Dates: start: 20240713
  4. MESALAMINE [Concomitant]
     Active Substance: MESALAMINE
     Dosage: 4 G, 1X/DAY
     Route: 048
  5. TYLENOL [Concomitant]
     Active Substance: ACETAMINOPHEN
     Dosage: 1 DF

REACTIONS (6)
  - Nausea [Not Recovered/Not Resolved]
  - Condition aggravated [Recovering/Resolving]
  - Asthenia [Unknown]
  - Tremor [Not Recovered/Not Resolved]
  - Nervousness [Unknown]
  - Off label use [Unknown]

NARRATIVE: CASE EVENT DATE: 20240101
